FAERS Safety Report 5442898-4 (Version None)
Quarter: 2007Q3

REPORT INFORMATION
  Report Type: 
  Country: None (occurrence: None)
  Receive Date: 20070831
  Receipt Date: 20070831
  Transmission Date: 20080115
  Serious: No
  Sender: FDA-Public Use
  Company Number: None

PATIENT
  Sex: Female

DRUGS (2)
  1. TEGRETOL [Suspect]
     Indication: NEURALGIA
     Dosage: 300 MG ONCE QID MONTHS
  2. GABAPENTIN [Suspect]
     Dosage: MONTHS

REACTIONS (6)
  - LIP SWELLING [None]
  - OEDEMA MOUTH [None]
  - PHARYNGEAL OEDEMA [None]
  - REACTION TO COLOURING [None]
  - SOMNOLENCE [None]
  - SWELLING FACE [None]
